FAERS Safety Report 9425850 (Version 1)
Quarter: 2013Q3

REPORT INFORMATION
  Report Type: Spontaneous
  Country: DE (occurrence: DE)
  Receive Date: 20130729
  Receipt Date: 20130729
  Transmission Date: 20140515
  Serious: Yes (Life-Threatening, Hospitalization)
  Sender: FDA-Public Use
  Company Number: DE-B.I. PHARMACEUTICALS,INC./RIDGEFIELD-2013-DE-01973DE

PATIENT
  Age: 70 Year
  Sex: Male
  Weight: 96 kg

DRUGS (3)
  1. PRADAXA [Suspect]
     Indication: ATRIAL FIBRILLATION
     Dosage: 300 MG
  2. AMIODARON [Concomitant]
     Indication: ATRIAL FIBRILLATION
  3. MULTAQ [Concomitant]
     Indication: ATRIAL FIBRILLATION

REACTIONS (3)
  - Atrioventricular block [Unknown]
  - Atrial fibrillation [Unknown]
  - Off label use [Unknown]
